FAERS Safety Report 5659070-5 (Version None)
Quarter: 2008Q1

REPORT INFORMATION
  Report Type: 
  Country: None (occurrence: None)
  Receive Date: 20080310
  Receipt Date: 20071218
  Transmission Date: 20080703
  Serious: No
  Sender: FDA-Public Use
  Company Number: US-BAYER-200714265BCC

PATIENT
  Age: 80 Year
  Sex: Female
  Weight: 50 kg

DRUGS (3)
  1. ALEVE [Suspect]
     Indication: ANALGESIA
     Dosage: UNIT DOSE: 220 MG
     Route: 048
     Dates: end: 20071218
  2. ALEVE [Suspect]
     Route: 048
     Dates: start: 20071219
  3. SINEMET [Concomitant]

REACTIONS (1)
  - FLUID RETENTION [None]
